FAERS Safety Report 23705737 (Version 1)
Quarter: 2024Q2

REPORT INFORMATION
  Report Type: Spontaneous
  Country: US (occurrence: US)
  Receive Date: 20240404
  Receipt Date: 20240404
  Transmission Date: 20240716
  Serious: No
  Sender: FDA-Public Use
  Company Number: US-SA-SAC20240401000311

PATIENT
  Sex: Female

DRUGS (15)
  1. DUPIXENT [Suspect]
     Active Substance: DUPILUMAB
     Indication: Type V hyperlipidaemia
     Dosage: 300 MG, QOW
     Route: 058
  2. DUPIXENT [Suspect]
     Active Substance: DUPILUMAB
     Indication: Asthma
  3. DUPIXENT [Suspect]
     Active Substance: DUPILUMAB
     Indication: Herpes virus infection
  4. DUPIXENT [Suspect]
     Active Substance: DUPILUMAB
     Indication: Eczema vesicular
  5. DUPIXENT [Suspect]
     Active Substance: DUPILUMAB
     Indication: Nicotine dependence
  6. DUPIXENT [Suspect]
     Active Substance: DUPILUMAB
     Indication: Chronic obstructive pulmonary disease
  7. DUPIXENT [Suspect]
     Active Substance: DUPILUMAB
     Indication: Anxiety disorder
  8. DUPIXENT [Suspect]
     Active Substance: DUPILUMAB
     Indication: Flushing
  9. DUPIXENT [Suspect]
     Active Substance: DUPILUMAB
     Indication: Menopause
  10. ALLERGY RELIEF [FEXOFENADINE HYDROCHLORIDE] [Concomitant]
  11. TYLENOL [Concomitant]
     Active Substance: ACETAMINOPHEN
  12. FISH OIL [Concomitant]
     Active Substance: FISH OIL
  13. CALCIUM [Concomitant]
     Active Substance: CALCIUM
  14. ADVIL [Concomitant]
     Active Substance: IBUPROFEN
  15. ACID REDUCER [RANITIDINE HYDROCHLORIDE] [Concomitant]

REACTIONS (4)
  - Injection site urticaria [Unknown]
  - Injection site inflammation [Unknown]
  - Injection site irritation [Unknown]
  - Product use in unapproved indication [Unknown]
